FAERS Safety Report 7068300 (Version 2)
Quarter: 2014Q3

REPORT INFORMATION
  Report Type: Spontaneous
  Country: US (occurrence: None)
  Receive Date: 20090724
  Receipt Date: 20140910
  Transmission Date: 20150326
  Serious: Yes (Hospitalization, Other)
  Sender: FDA-Public Use
  Company Number: 2009S1005627

PATIENT
  Age: 74 Year
  Sex: Female

DRUGS (11)
  1. METANX (PYRIDOXINE HYDROCHLORIDE, CALCIUM MEFOLINATE, VITAMIN B12 NOS) [Concomitant]
  2. PROTONIX [Concomitant]
     Active Substance: PANTOPRAZOLE SODIUM
  3. SULFASALAZINE (SULFASALAZINE) [Concomitant]
     Active Substance: SULFASALAZINE
  4. RESTORIL [Concomitant]
     Active Substance: TEMAZEPAM
  5. MOBIC [Concomitant]
     Active Substance: MELOXICAM
  6. PHOSPHO-SODA [Suspect]
     Active Substance: SODIUM PHOSPHATE, DIBASIC\SODIUM PHOSPHATE, MONOBASIC
     Indication: COLONOSCOPY
     Route: 048
     Dates: start: 20080415
  7. FLEXALL (MENTHOL) [Concomitant]
  8. DIOVAN (VALSARATAN) [Concomitant]
  9. ASPIRIN. [Concomitant]
     Active Substance: ASPIRIN
  10. TREXALL (METHOTREXATE SODIUM) [Concomitant]
  11. EXCEDRIN (ACETYLSALICYLIC ACID, CAFFEINE, SALICYLAMIDE) [Concomitant]

REACTIONS (8)
  - Anaemia [None]
  - Hiatus hernia [None]
  - Renal failure chronic [None]
  - Renal failure acute [None]
  - Diverticulum [None]
  - Haemorrhoids [None]
  - Iron deficiency anaemia [None]
  - Spleen disorder [None]

NARRATIVE: CASE EVENT DATE: 2008
